FAERS Safety Report 5489741-5 (Version None)
Quarter: 2007Q4

REPORT INFORMATION
  Report Type: 
  Country: None (occurrence: None)
  Receive Date: 20071017
  Receipt Date: 20071017
  Transmission Date: 20080405
  Serious: Yes (Death, Other)
  Sender: FDA-Public Use
  Company Number: None

PATIENT
  Age: 55 Year
  Sex: Female

DRUGS (1)
  1. APLISOL [Suspect]
     Dosage: IM
     Route: 030
     Dates: start: 20071010

REACTIONS (1)
  - WRONG TECHNIQUE IN DRUG USAGE PROCESS [None]
